FAERS Safety Report 13349193 (Version 1)
Quarter: 2017Q1

REPORT INFORMATION
  Report Type: Spontaneous
  Country: None (occurrence: US)
  Receive Date: 20170317
  Receipt Date: 20170317
  Transmission Date: 20170428
  Serious: No
  Sender: FDA-Public Use
  Company Number: None

PATIENT
  Age: 47 Year
  Sex: Male

DRUGS (2)
  1. TACROLIMUS 0.5MG [Suspect]
     Active Substance: TACROLIMUS
     Dates: start: 20170210
  2. TACROLIMUS 1MG [Suspect]
     Active Substance: TACROLIMUS
     Indication: TRANSPLANT
     Dates: start: 20170210

REACTIONS (1)
  - Tremor [None]

NARRATIVE: CASE EVENT DATE: 20170314
